FAERS Safety Report 7704294-6 (Version None)
Quarter: 2011Q3

REPORT INFORMATION
  Report Type: 
  Country: None (occurrence: None)
  Receive Date: 20110823
  Receipt Date: 20110815
  Transmission Date: 20111222
  Serious: Yes (Hospitalization, Other)
  Sender: FDA-Public Use
  Company Number: PHHY2011US55907

PATIENT
  Sex: Female

DRUGS (9)
  1. FLOVENT [Concomitant]
  2. DUONEB [Concomitant]
  3. COMBIVENT [Concomitant]
  4. POTASSIUM [Concomitant]
  5. TOBI [Suspect]
     Indication: PSEUDOMONAS INFECTION
     Dosage: UNK UKN, BID
     Dates: start: 20110513
  6. TOBI [Suspect]
     Dosage: UNK UKN, UNK
     Dates: start: 20110516
  7. CIPROFLOXACIN [Suspect]
     Indication: PSEUDOMONAS INFECTION
     Route: 048
     Dates: start: 20110513
  8. CIPROFLOXACIN [Suspect]
     Dates: start: 20110514
  9. LASIX [Suspect]
     Dosage: 80 MG, BID (80 MG IN THE MORNING AND IN THE EVENING)

REACTIONS (10)
  - MALAISE [None]
  - DYSPNOEA [None]
  - CARDIAC FAILURE CONGESTIVE [None]
  - FEELING COLD [None]
  - CHRONIC OBSTRUCTIVE PULMONARY DISEASE [None]
  - PRODUCTIVE COUGH [None]
  - CHRONIC RESPIRATORY FAILURE [None]
  - FEELING HOT [None]
  - OEDEMA [None]
  - DYSPNOEA EXERTIONAL [None]
